FAERS Safety Report 8822089 (Version 2)
Quarter: 2012Q4

REPORT INFORMATION
  Report Type: 
  Country: HU (occurrence: HU)
  Receive Date: 20121003
  Receipt Date: 20121023
  Transmission Date: 20130627
  Serious: Yes (Hospitalization, Other)
  Sender: FDA-Public Use
  Company Number: HU-RANBAXY-2012RR-60519

PATIENT
  Age: 53 Year
  Sex: Female

DRUGS (14)
  1. TEGRETOL CR [Suspect]
     Indication: BIPOLAR DISORDER
     Dosage: 200 mg, qd
     Route: 065
  2. UNSPECIFIED IMMUNOMODULATOR [Interacting]
     Indication: BIPOLAR DISORDER
     Dosage: 200 mg, qd
     Route: 065
  3. CIPRALEX [Interacting]
     Indication: BIPOLAR DISORDER
     Dosage: 10 mg
     Route: 065
  4. NIZORAL [Suspect]
     Indication: INTERTRIGO
     Dosage: 200 mg, qd
     Route: 065
  5. LITHIUM [Interacting]
     Indication: BIPOLAR DISORDER
     Dosage: 250 mg, bid
     Route: 065
  6. LITHIUM [Interacting]
     Indication: BIPOLAR DISORDER
     Dosage: 500 mg, bid
     Route: 065
  7. LEVOTHYROXINE [Suspect]
     Indication: PRODUCT USED FOR UNKNOWN INDICATION
     Dosage: 150 ?g, UNK
     Route: 065
  8. ATORVASTATIN [Suspect]
     Indication: PRODUCT USED FOR UNKNOWN INDICATION
     Dosage: 40 mg
     Route: 065
  9. CLONAZEPAM [Suspect]
     Indication: PRODUCT USED FOR UNKNOWN INDICATION
     Dosage: 1-1-2 mg
     Route: 065
  10. CINOLAZEPAM [Suspect]
     Indication: PRODUCT USED FOR UNKNOWN INDICATION
     Dosage: 40 mg, UNK
     Route: 065
  11. AMILORIDE [Suspect]
     Indication: PRODUCT USED FOR UNKNOWN INDICATION
     Dosage: 5 mg, UNK
     Route: 065
  12. HYDROCHLOROTHIAZIDE [Suspect]
     Indication: PRODUCT USED FOR UNKNOWN INDICATION
     Dosage: 50 mg, UNK
     Route: 065
  13. ACETYLSALICYLIC ACID [Suspect]
     Indication: PRODUCT USED FOR UNKNOWN INDICATION
     Dosage: 100 mg
     Route: 065
  14. CLONAZEPAM [Suspect]
     Indication: PRODUCT USED FOR UNKNOWN INDICATION
     Dosage: 0.5-0.5-3 mg
     Route: 065

REACTIONS (10)
  - Sinus arrhythmia [Recovered/Resolved]
  - Drug interaction [Recovered/Resolved]
  - Fatigue [None]
  - Tremor [None]
  - Sinus bradycardia [None]
  - Sinoatrial block [None]
  - Sinus arrest [None]
  - Palpitations [None]
  - Atrial fibrillation [None]
  - Atrial tachycardia [None]
